FAERS Safety Report 5001854-0 (Version None)
Quarter: 2006Q2

REPORT INFORMATION
  Report Type: 
  Country: None (occurrence: None)
  Receive Date: 20060515
  Receipt Date: 20060502
  Transmission Date: 20061013
  Serious: Yes (Other)
  Sender: FDA-Public Use
  Company Number: NZ-GLAXOSMITHKLINE-B0423072A

PATIENT
  Sex: Male

DRUGS (3)
  1. SEREVENT [Suspect]
     Route: 055
  2. FLIXOTIDE [Suspect]
     Route: 055
  3. VENTOLIN [Suspect]
     Route: 055

REACTIONS (2)
  - ANGINA PECTORIS [None]
  - CHEST PAIN [None]
